FAERS Safety Report 7814428-0 (Version None)
Quarter: 2011Q4

REPORT INFORMATION
  Report Type: 
  Country: None (occurrence: None)
  Receive Date: 20111014
  Receipt Date: 20111011
  Transmission Date: 20120403
  Serious: Yes (Death, Other)
  Sender: FDA-Public Use
  Company Number: PHHY2011CA19152

PATIENT
  Sex: Male

DRUGS (1)
  1. ZOMETA [Suspect]
     Indication: PROSTATE CANCER
     Dosage: 4 MG, EVERY 4 WEEKS
     Route: 042
     Dates: start: 20110303

REACTIONS (14)
  - INFLUENZA LIKE ILLNESS [None]
  - MALAISE [None]
  - VIITH NERVE PARALYSIS [None]
  - NEOPLASM PROGRESSION [None]
  - METASTASES TO BONE [None]
  - DEPRESSION [None]
  - DEHYDRATION [None]
  - CHEST PAIN [None]
  - DEATH [None]
  - TRANSIENT ISCHAEMIC ATTACK [None]
  - VITH NERVE PARALYSIS [None]
  - NEOPLASM MALIGNANT [None]
  - PAIN [None]
  - BACK PAIN [None]
